FAERS Safety Report 13275906 (Version 1)
Quarter: 2017Q1

REPORT INFORMATION
  Report Type: Spontaneous
  Country: US (occurrence: US)
  Receive Date: 20170227
  Receipt Date: 20170227
  Transmission Date: 20170428
  Serious: No
  Sender: FDA-Public Use
  Company Number: None

PATIENT
  Age: 59 Year
  Sex: Female
  Weight: 74.25 kg

DRUGS (6)
  1. VITAMIN D [Concomitant]
     Active Substance: CHOLECALCIFEROL
  2. LIFITEGRAST OPTHAMALIC 5% [Suspect]
     Active Substance: LIFITEGRAST
     Indication: DRY EYE
     Dosage: ?          QUANTITY:1 VIAL;?
     Route: 047
     Dates: start: 20170207, end: 20170215
  3. LEVOTHYROXIN [Concomitant]
     Active Substance: LEVOTHYROXINE
  4. MULTI VITAMIN [Concomitant]
     Active Substance: VITAMINS
  5. BIOTIN [Concomitant]
     Active Substance: BIOTIN
  6. VITAMIN A [Concomitant]
     Active Substance: VITAMIN A

REACTIONS (1)
  - Burning sensation [None]

NARRATIVE: CASE EVENT DATE: 20170215
